FAERS Safety Report 9456277 (Version 3)
Quarter: 2013Q4

REPORT INFORMATION
  Report Type: Spontaneous
  Country: US (occurrence: US)
  Receive Date: 20130813
  Receipt Date: 20131220
  Transmission Date: 20140711
  Serious: Yes (Other)
  Sender: FDA-Public Use
  Company Number: US-BAYER-2013-097544

PATIENT
  Age: 26 Year
  Sex: Female

DRUGS (1)
  1. MIRENA [Suspect]
     Indication: CONTRACEPTION
     Dosage: 20 MCG/24HR, CONT
     Route: 015
     Dates: start: 20130416, end: 20130814

REACTIONS (6)
  - Device breakage [None]
  - Complication of device removal [None]
  - Embedded device [Recovering/Resolving]
  - Device difficult to use [Recovered/Resolved]
  - Abdominal pain [Recovering/Resolving]
  - Genital haemorrhage [Recovering/Resolving]
